FAERS Safety Report 17264980 (Version 1)
Quarter: 2020Q1

REPORT INFORMATION
  Report Type: Report from Study
  Country: US (occurrence: US)
  Receive Date: 20200113
  Receipt Date: 20200113
  Transmission Date: 20200409
  Serious: Yes (Death, Hospitalization)
  Sender: FDA-Public Use
  Company Number: US-ACTELION-A-US2019-197435

PATIENT
  Age: 59 Year
  Sex: Female
  Weight: 64.85 kg

DRUGS (5)
  1. VELETRI [Suspect]
     Active Substance: EPOPROSTENOL
     Indication: PULMONARY ARTERIAL HYPERTENSION
     Dosage: 19 NG/KG, PER MIN
     Route: 042
  2. SILDENAFIL CITRATE. [Concomitant]
     Active Substance: SILDENAFIL CITRATE
  3. VELETRI [Suspect]
     Active Substance: EPOPROSTENOL
     Dosage: 15 NG/KG, PER MIN
     Route: 042
  4. VELETRI [Suspect]
     Active Substance: EPOPROSTENOL
     Dosage: 17 NG/KG, PER MIN
     Route: 042
  5. VELETRI [Suspect]
     Active Substance: EPOPROSTENOL
     Dosage: 16 NG/KG, PER MIN
     Route: 042

REACTIONS (18)
  - Productive cough [Not Recovered/Not Resolved]
  - Death [Fatal]
  - Headache [Unknown]
  - Dyspnoea [Unknown]
  - Hypotension [Unknown]
  - Catheter site haemorrhage [Unknown]
  - Pain in jaw [Unknown]
  - Chest pain [Unknown]
  - Oedema [Unknown]
  - Lower respiratory tract congestion [Unknown]
  - Cough [Unknown]
  - Flushing [Unknown]
  - Dizziness [Recovered/Resolved]
  - Adverse event [Unknown]
  - Diarrhoea [Recovered/Resolved]
  - Nausea [Recovered/Resolved]
  - Depressed mood [Unknown]
  - Thrombosis [Unknown]

NARRATIVE: CASE EVENT DATE: 20191019
